FAERS Safety Report 25668279 (Version 3)
Quarter: 2025Q4

REPORT INFORMATION
  Report Type: Report from Study
  Country: CA (occurrence: CA)
  Receive Date: 20250812
  Receipt Date: 20251128
  Transmission Date: 20260117
  Serious: Yes (Hospitalization, Other)
  Sender: TOLMAR
  Company Number: TLM-2025-00628 (1)

PATIENT
  Age: 73 Year
  Sex: Male

DRUGS (5)
  1. ELIGARD [Suspect]
     Active Substance: LEUPROLIDE ACETATE
     Indication: Prostate cancer
     Dosage: 30 MG, EVERY 4 MONTHS
     Route: 058
     Dates: start: 20241218
  2. ELIGARD [Suspect]
     Active Substance: LEUPROLIDE ACETATE
     Dosage: 30 MG, EVERY 4 MONTHS
     Route: 058
     Dates: start: 20250411
  3. ELIGARD [Suspect]
     Active Substance: LEUPROLIDE ACETATE
     Dosage: 30 MG, EVERY 4 MONTHS
     Route: 058
     Dates: start: 20250729
  4. ELIGARD [Suspect]
     Active Substance: LEUPROLIDE ACETATE
     Dosage: 30 MG, EVERY 4 MONTHS
     Route: 058
     Dates: start: 20251118
  5. ELIGARD [Suspect]
     Active Substance: LEUPROLIDE ACETATE
     Indication: Prostate cancer

REACTIONS (6)
  - Arrhythmia [Unknown]
  - Urethral stenosis [Unknown]
  - Urinary retention [Unknown]
  - Injection site pain [Recovered/Resolved]
  - Injection site pain [Recovered/Resolved]
  - Hot flush [Not Recovered/Not Resolved]

NARRATIVE: CASE EVENT DATE: 20250411
